FAERS Safety Report 6120194-X (Version None)
Quarter: 2009Q1

REPORT INFORMATION
  Report Type: 
  Country: None (occurrence: None)
  Receive Date: 20090316
  Receipt Date: 20090227
  Transmission Date: 20090719
  Serious: No
  Sender: FDA-Public Use
  Company Number: US-ABBOTT-09P-163-0559730-00

PATIENT
  Sex: Female

DRUGS (4)
  1. TRILIPIX [Suspect]
     Indication: BLOOD CHOLESTEROL INCREASED
     Dates: start: 20080101
  2. TRILIPIX [Suspect]
     Indication: BLOOD TRIGLYCERIDES INCREASED
  3. SYNTHROID [Concomitant]
     Indication: HYPOTHYROIDISM
  4. NEXIUM [Concomitant]
     Indication: GASTROOESOPHAGEAL REFLUX DISEASE

REACTIONS (3)
  - ASTHENIA [None]
  - FATIGUE [None]
  - PAIN [None]
